FAERS Safety Report 5280049-X (Version None)
Quarter: 2007Q1

REPORT INFORMATION
  Report Type: 
  Country: None (occurrence: None)
  Receive Date: 20070329
  Receipt Date: 20070314
  Transmission Date: 20070707
  Serious: Yes (Hospitalization)
  Sender: FDA-Public Use
  Company Number: FRWYE026214MAR07

PATIENT
  Age: 39 Year
  Sex: Male

DRUGS (3)
  1. ENBREL [Suspect]
     Indication: SPONDYLITIS
     Dosage: 50 MG TOTAL WEEKLY
     Route: 058
     Dates: end: 20061226
  2. MINOCIN [Suspect]
     Dosage: UNKNOWN
     Route: 048
     Dates: end: 20061226
  3. VOLTAREN [Suspect]
     Indication: SPONDYLITIS
     Route: 048
     Dates: end: 20061226

REACTIONS (2)
  - CARBUNCLE [None]
  - STAPHYLOCOCCAL SKIN INFECTION [None]
